FAERS Safety Report 7089326-3 (Version None)
Quarter: 2010Q4

REPORT INFORMATION
  Report Type: 
  Country: None (occurrence: None)
  Receive Date: 20101108
  Receipt Date: 20101025
  Transmission Date: 20110411
  Serious: No
  Sender: FDA-Public Use
  Company Number: KR-JNJFOC-20101006996

PATIENT
  Age: 60 Year
  Sex: Female

DRUGS (3)
  1. DURAGESIC-100 [Suspect]
     Indication: CANCER PAIN
     Route: 062
  2. DURAGESIC-100 [Suspect]
     Route: 062
  3. IRCODON [Concomitant]
     Indication: CANCER PAIN

REACTIONS (3)
  - COLD SWEAT [None]
  - PRODUCT QUALITY ISSUE [None]
  - WRONG TECHNIQUE IN DRUG USAGE PROCESS [None]
